FAERS Safety Report 16284091 (Version 3)
Quarter: 2019Q2

REPORT INFORMATION
  Report Type: Spontaneous
  Country: DZ (occurrence: DZ)
  Receive Date: 20190507
  Receipt Date: 20190614
  Transmission Date: 20190711
  Serious: Yes (Death, Hospitalization, Other)
  Sender: FDA-Public Use
  Company Number: PHHY2019DZ103587

PATIENT
  Age: 60 Year
  Sex: Male

DRUGS (3)
  1. TASIGNA [Suspect]
     Active Substance: NILOTINIB
     Dosage: 800 MG, UNK
     Route: 065
     Dates: start: 20180529, end: 20181113
  2. TASIGNA [Suspect]
     Active Substance: NILOTINIB
     Indication: CHRONIC MYELOID LEUKAEMIA
     Dosage: 800 MG, UNK
     Route: 065
     Dates: start: 20180227, end: 20180508
  3. TASIGNA [Suspect]
     Active Substance: NILOTINIB
     Dosage: 400 MG, UNK
     Route: 065
     Dates: start: 20181113

REACTIONS (7)
  - Haemorrhagic stroke [Fatal]
  - Thrombocytopenia [Unknown]
  - Ischaemic stroke [Unknown]
  - Pancytopenia [Unknown]
  - Aplasia [Unknown]
  - Anaemia [Unknown]
  - Chronic myeloid leukaemia [Unknown]

NARRATIVE: CASE EVENT DATE: 20180314
